FAERS Safety Report 4703621-1 (Version None)
Quarter: 2005Q2

REPORT INFORMATION
  Report Type: 
  Country: None (occurrence: None)
  Receive Date: 20050628
  Receipt Date: 20050627
  Transmission Date: 20051028
  Serious: Yes (Other)
  Sender: FDA-Public Use
  Company Number: 2005-05-2186

PATIENT
  Age: 5 Year
  Sex: Male
  Weight: 29.4838 kg

DRUGS (1)
  1. CLARITIN-D 24 HOUR [Suspect]
     Indication: SEASONAL ALLERGY
     Dosage: ONCE ORAL
     Route: 048
     Dates: start: 20050527, end: 20050527

REACTIONS (4)
  - DISORIENTATION [None]
  - FALL [None]
  - HEADACHE [None]
  - SYNCOPE [None]
